APPROVED DRUG PRODUCT: ZOMIG-ZMT
Active Ingredient: ZOLMITRIPTAN
Strength: 2.5MG **Federal Register determination that product was not discontinued or withdrawn for safety or effectiveness reasons**
Dosage Form/Route: TABLET, ORALLY DISINTEGRATING;ORAL
Application: N021231 | Product #001
Applicant: ASTRAZENECA PHARMACEUTICALS LP
Approved: Feb 13, 2001 | RLD: Yes | RS: No | Type: DISCN